FAERS Safety Report 5961093-3 (Version None)
Quarter: 2008Q4

REPORT INFORMATION
  Report Type: 
  Country: None (occurrence: None)
  Receive Date: 20081119
  Receipt Date: 20081103
  Transmission Date: 20090506
  Serious: Yes (Hospitalization)
  Sender: FDA-Public Use
  Company Number: WAES 0805USA05040

PATIENT
  Age: 78 Year
  Sex: Male
  Weight: 96.6162 kg

DRUGS (48)
  1. CAP VORINOSTAT UNK [Suspect]
     Indication: ACUTE MYELOID LEUKAEMIA
     Dosage: 400 MG/DAILY/PO : 400 MG/DAILY/PO : 400 MG/DAILY/PO : 400 MG/DAILY/PO
     Route: 048
     Dates: start: 20080331, end: 20080413
  2. CAP VORINOSTAT UNK [Suspect]
     Indication: ACUTE MYELOID LEUKAEMIA
     Dosage: 400 MG/DAILY/PO : 400 MG/DAILY/PO : 400 MG/DAILY/PO : 400 MG/DAILY/PO
     Route: 048
     Dates: start: 20080430, end: 20080513
  3. CAP VORINOSTAT UNK [Suspect]
     Indication: ACUTE MYELOID LEUKAEMIA
     Dosage: 400 MG/DAILY/PO : 400 MG/DAILY/PO : 400 MG/DAILY/PO : 400 MG/DAILY/PO
     Route: 048
     Dates: start: 20080528, end: 20080610
  4. CAP VORINOSTAT UNK [Suspect]
     Indication: ACUTE MYELOID LEUKAEMIA
     Dosage: 400 MG/DAILY/PO : 400 MG/DAILY/PO : 400 MG/DAILY/PO : 400 MG/DAILY/PO
     Route: 048
     Dates: start: 20080702, end: 20080715
  5. DECITABINE UNK [Suspect]
     Indication: ACUTE MYELOID LEUKAEMIA
     Dosage: 45.4 MG/IV : 45.4 MG/IV : 44.8 MG/IV : 44.8 MG/IV : 44.8 MG/IV
     Route: 042
     Dates: start: 20080331, end: 20080404
  6. DECITABINE UNK [Suspect]
     Indication: ACUTE MYELOID LEUKAEMIA
     Dosage: 45.4 MG/IV : 45.4 MG/IV : 44.8 MG/IV : 44.8 MG/IV : 44.8 MG/IV
     Route: 042
     Dates: start: 20080430, end: 20080504
  7. DECITABINE UNK [Suspect]
     Indication: ACUTE MYELOID LEUKAEMIA
     Dosage: 45.4 MG/IV : 45.4 MG/IV : 44.8 MG/IV : 44.8 MG/IV : 44.8 MG/IV
     Route: 042
     Dates: start: 20080528, end: 20080601
  8. DECITABINE UNK [Suspect]
     Indication: ACUTE MYELOID LEUKAEMIA
     Dosage: 45.4 MG/IV : 45.4 MG/IV : 44.8 MG/IV : 44.8 MG/IV : 44.8 MG/IV
     Route: 042
     Dates: start: 20080702, end: 20080703
  9. DECITABINE UNK [Suspect]
     Indication: ACUTE MYELOID LEUKAEMIA
     Dosage: 45.4 MG/IV : 45.4 MG/IV : 44.8 MG/IV : 44.8 MG/IV : 44.8 MG/IV
     Route: 042
     Dates: start: 20080705, end: 20080707
  10. ASPART [Concomitant]
  11. AVELOX [Concomitant]
  12. BACTRIM DS [Concomitant]
  13. COLACE [Concomitant]
  14. COMPAZINE [Concomitant]
  15. COREG [Concomitant]
  16. CRESTOR [Concomitant]
  17. CRESTOR [Concomitant]
  18. DIFLUCAN [Concomitant]
  19. FLOMAX (MORNIFLUMATE) [Concomitant]
  20. HIBICLENS [Concomitant]
  21. MUCOMYST [Concomitant]
  22. NORVASC [Concomitant]
  23. PLAVIX [Concomitant]
  24. PROTONIX [Concomitant]
  25. ROLAIDS [Concomitant]
  26. TUMS [Concomitant]
  27. ZOFRAN [Concomitant]
  28. ZOFRAN [Concomitant]
  29. ZOSYN [Concomitant]
  30. [THERAPY UNSPECIFIED) [Concomitant]
  31. ACETAMINOPHEN [Concomitant]
  32. ACYCLOVIR [Concomitant]
  33. ALLOPURINOL [Concomitant]
  34. ALLOPURINOL [Concomitant]
  35. CHLORHEXIDINE GLUCONATE [Concomitant]
  36. DIGOXIN [Concomitant]
  37. DIPHENYDRAMINE HYDROCHLORIDE [Concomitant]
  38. EPTIFIBATIDE [Concomitant]
  39. LABETOLOL HYDROCHLORIDE [Concomitant]
  40. LISINOPRIL [Concomitant]
  41. LISINOPRIL [Concomitant]
  42. LORAZEPAM [Concomitant]
  43. METFORMIN HCL [Concomitant]
  44. MOXIFLOXACIN HYDROCHLORIDE [Concomitant]
  45. MUPIROCIN [Concomitant]
  46. NYSTATIN [Concomitant]
  47. OXYCODONE HCL [Concomitant]
  48. VANCOMYCIN [Concomitant]

REACTIONS (26)
  - ATRIAL FIBRILLATION [None]
  - BACTERIAL INFECTION [None]
  - CARDIAC FAILURE CONGESTIVE [None]
  - CELLULITIS [None]
  - CLOSTRIDIAL INFECTION [None]
  - CONSTIPATION [None]
  - CORONARY ARTERY DISEASE [None]
  - CULTURE URINE POSITIVE [None]
  - CULTURE WOUND POSITIVE [None]
  - ENTEROCOCCAL INFECTION [None]
  - EPIDIDYMITIS [None]
  - FEBRILE NEUTROPENIA [None]
  - FURUNCLE [None]
  - GASTROOESOPHAGEAL REFLUX DISEASE [None]
  - HYPERBILIRUBINAEMIA [None]
  - HYPERGLYCAEMIA [None]
  - HYPERTENSION [None]
  - MASTOIDITIS [None]
  - MYOCARDIAL INFARCTION [None]
  - NAUSEA [None]
  - PLEURAL EFFUSION [None]
  - PNEUMONIA [None]
  - PULMONARY OEDEMA [None]
  - SINUSITIS [None]
  - STAPHYLOCOCCAL INFECTION [None]
  - VOMITING [None]
